FAERS Safety Report 5798814-9 (Version None)
Quarter: 2008Q3

REPORT INFORMATION
  Report Type: 
  Country: None (occurrence: None)
  Receive Date: 20080702
  Receipt Date: 20080522
  Transmission Date: 20090109
  Serious: Yes (Hospitalization)
  Sender: FDA-Public Use
  Company Number: AU-GENENTECH-221807

PATIENT
  Sex: Male
  Weight: 85 kg

DRUGS (5)
  1. RITUXIMAB [Suspect]
     Indication: B-CELL LYMPHOMA
     Dosage: 814 MG, Q21D
     Route: 042
     Dates: start: 20051116, end: 20060307
  2. CYCLOPHOSPHAMIDE [Suspect]
     Indication: B-CELL LYMPHOMA
     Dosage: 1545 MG, Q21D
     Route: 042
     Dates: start: 20051116, end: 20060307
  3. DOXORUBICIN HCL [Suspect]
     Indication: B-CELL LYMPHOMA
     Dosage: 73 MG, Q21D
     Route: 042
     Dates: start: 20051116, end: 20060307
  4. VINCRISTINE [Suspect]
     Indication: B-CELL LYMPHOMA
     Dosage: 2 MG, QDX5D/21DC
     Route: 042
     Dates: start: 20051116, end: 20060307
  5. PREDNISONE 50MG TAB [Suspect]
     Indication: B-CELL LYMPHOMA
     Dosage: 100 MG, Q21D
     Route: 048
     Dates: start: 20051116, end: 20060311

REACTIONS (4)
  - BACTERIAL INFECTION [None]
  - CHOLECYSTITIS [None]
  - FEBRILE NEUTROPENIA [None]
  - PYREXIA [None]
